FAERS Safety Report 7200188-3 (Version None)
Quarter: 2010Q4

REPORT INFORMATION
  Report Type: 
  Country: None (occurrence: None)
  Receive Date: 20101228
  Receipt Date: 20101217
  Transmission Date: 20110411
  Serious: Yes (Hospitalization, Other)
  Sender: FDA-Public Use
  Company Number: JP-PFIZER INC-2010168492

PATIENT
  Age: 83 Year
  Sex: Male
  Weight: 60 kg

DRUGS (4)
  1. LYRICA [Suspect]
     Indication: NEURALGIA
     Dosage: 75 MG, 1X/DAY
     Route: 048
     Dates: start: 20101122, end: 20101201
  2. PRAVASTATIN SODIUM [Suspect]
     Indication: HYPERLIPIDAEMIA
     Dosage: 10 MG, AS NEEDED
     Route: 048
     Dates: start: 20101128, end: 20101201
  3. ASPIRIN [Suspect]
     Indication: TRANSIENT ISCHAEMIC ATTACK
     Dosage: 100 MG, 1X/DAY
     Route: 048
     Dates: start: 20101128, end: 20101201
  4. AMLODIPINE BESILATE [Concomitant]
     Indication: HYPERTENSION
     Dosage: 5 MG, 1X/DAY
     Route: 048
     Dates: start: 20101128

REACTIONS (5)
  - ACUTE RESPIRATORY DISTRESS SYNDROME [None]
  - EPISTAXIS [None]
  - HAEMOPTYSIS [None]
  - INTERSTITIAL LUNG DISEASE [None]
  - PNEUMONIA [None]
